FAERS Safety Report 7205148-4 (Version None)
Quarter: 2010Q4

REPORT INFORMATION
  Report Type: 
  Country: None (occurrence: None)
  Receive Date: 20101231
  Receipt Date: 20101221
  Transmission Date: 20110411
  Serious: No
  Sender: FDA-Public Use
  Company Number: US-BIOGENIDEC-2010BI037295

PATIENT
  Age: 50 Year
  Sex: Female

DRUGS (2)
  1. TYSABRI [Suspect]
     Indication: MULTIPLE SCLEROSIS
     Route: 042
     Dates: start: 20080611
  2. DIGOXIN [Concomitant]
     Dates: end: 20101001

REACTIONS (7)
  - BLOOD PRESSURE DECREASED [None]
  - CHEST PAIN [None]
  - DIARRHOEA [None]
  - HEART RATE DECREASED [None]
  - NAUSEA [None]
  - SYNCOPE [None]
  - VOMITING [None]
